FAERS Safety Report 7180491-6 (Version None)
Quarter: 2010Q4

REPORT INFORMATION
  Report Type: 
  Country: None (occurrence: None)
  Receive Date: 20101221
  Receipt Date: 20101215
  Transmission Date: 20110411
  Serious: Yes (Other)
  Sender: FDA-Public Use
  Company Number: CHPA2010US19103

PATIENT
  Age: 85 Year
  Sex: Female
  Weight: 86.168 kg

DRUGS (1)
  1. VOLTAREN [Suspect]
     Indication: RHEUMATOID ARTHRITIS
     Dosage: 1 G, ONCE A DAY
     Route: 061
     Dates: start: 20070101

REACTIONS (3)
  - CARDIAC FAILURE CONGESTIVE [None]
  - DRUG ADMINISTERED AT INAPPROPRIATE SITE [None]
  - OFF LABEL USE [None]
